FAERS Safety Report 7453837-9 (Version None)
Quarter: 2011Q2

REPORT INFORMATION
  Report Type: 
  Country: None (occurrence: None)
  Receive Date: 20110502
  Receipt Date: 20110401
  Transmission Date: 20111010
  Serious: Yes (Other)
  Sender: FDA-Public Use
  Company Number: US-BAYER-2011-017927

PATIENT
  Sex: Male
  Weight: 83.447 kg

DRUGS (58)
  1. MAGNEVIST [Suspect]
     Indication: NUCLEAR MAGNETIC RESONANCE IMAGING BRAIN
  2. MAGNEVIST [Suspect]
  3. PROHANCE [Suspect]
     Indication: NUCLEAR MAGNETIC RESONANCE IMAGING
  4. MONOPRIL [Concomitant]
  5. MAGNEVIST [Suspect]
     Indication: NUCLEAR MAGNETIC RESONANCE IMAGING
     Dosage: 20 ML, ONCE
     Route: 042
     Dates: start: 19980518, end: 19980518
  6. LASIX [Concomitant]
  7. PHOSLO [Concomitant]
  8. ZAROXOLYN [Concomitant]
  9. DARVOCET [Concomitant]
  10. ACCUPRIL [Concomitant]
  11. AMIODARONE [Concomitant]
  12. OMNISCAN [Suspect]
     Indication: NUCLEAR MAGNETIC RESONANCE IMAGING
  13. K-DUR [Concomitant]
  14. PREDNISONE [Concomitant]
  15. DIOVAN [Concomitant]
  16. PREVACID [Concomitant]
  17. SENSIPAR [Concomitant]
  18. KAYEXALATE [Concomitant]
  19. NOVOLIN [INSULIN] [Concomitant]
  20. HUMULIN [INSULIN HUMAN INJECTION, ISOPHANE] [Concomitant]
  21. OPTIMARK [Suspect]
     Indication: NUCLEAR MAGNETIC RESONANCE IMAGING
  22. OPTIMARK [Suspect]
     Indication: ANGIOGRAM
  23. HYDRALAZINE HCL [Concomitant]
  24. NEURONTIN [Concomitant]
  25. CLONIDINE [Concomitant]
  26. RENVELA [Concomitant]
  27. PROHANCE [Suspect]
     Indication: ANGIOGRAM
  28. NEPHROCAPS [VIT C,VIT H,B12,B9,B3,PANTOTHEN AC,B6,B2,B1 HCL] [Concomitant]
  29. MECLIZINE [Concomitant]
  30. CYTOXAN [Concomitant]
  31. DIURIL [Concomitant]
  32. PERCOCET [Concomitant]
  33. LOPRESSOR [Concomitant]
  34. NEXIUM [Concomitant]
  35. LIPITOR [Concomitant]
  36. SODIUM POLYSTYRENE SULFONATE [Concomitant]
  37. LEVOTHYROXINE [Concomitant]
  38. OMNISCAN [Suspect]
     Indication: ANGIOGRAM
  39. DEMADEX [Concomitant]
  40. PEPCID [Concomitant]
  41. ACETAMINOPHEN [Concomitant]
  42. VERAPAMIL [Concomitant]
  43. PLAVIX [Concomitant]
  44. FLOMAX [Concomitant]
  45. FISH OIL [Concomitant]
  46. MAGNEVIST [Suspect]
     Indication: ANGIOGRAM
  47. MULTIHANCE [Suspect]
     Indication: NUCLEAR MAGNETIC RESONANCE IMAGING
  48. MULTIHANCE [Suspect]
     Indication: ANGIOGRAM
  49. NORVASC [Concomitant]
  50. ANCEF [Concomitant]
  51. RENAGEL [Concomitant]
  52. ASCORBIC ACID [Concomitant]
  53. COVERA-HS [Concomitant]
  54. EPOGEN [Concomitant]
  55. CATAPRES [Concomitant]
  56. ASPIRIN [Concomitant]
  57. COUMADIN [Concomitant]
  58. WARFARIN [Concomitant]

REACTIONS (9)
  - OEDEMA PERIPHERAL [None]
  - PAIN [None]
  - PRURITUS [None]
  - DRY SKIN [None]
  - RASH [None]
  - SKIN TIGHTNESS [None]
  - SKIN HYPERTROPHY [None]
  - NEPHROGENIC SYSTEMIC FIBROSIS [None]
  - SKIN DISCOLOURATION [None]
